FAERS Safety Report 17282936 (Version 1)
Quarter: 2020Q1

REPORT INFORMATION
  Report Type: Report from Study
  Country: RU (occurrence: RU)
  Receive Date: 20200117
  Receipt Date: 20200117
  Transmission Date: 20200409
  Serious: Yes (Other)
  Sender: FDA-Public Use
  Company Number: RU-ASTRAZENECA-2020SE06104

PATIENT
  Age: 67 Year
  Sex: Female
  Weight: 85 kg

DRUGS (4)
  1. FORXIGA [Suspect]
     Active Substance: DAPAGLIFLOZIN
     Indication: TYPE 2 DIABETES MELLITUS
     Dosage: 10.0MG UNKNOWN
     Route: 048
  2. ANTIBACTERIAL THERAPY [Concomitant]
  3. DIABETON MB [Concomitant]
     Active Substance: GLICLAZIDE
  4. CO-PERINEVA [Concomitant]

REACTIONS (8)
  - Cystitis [Unknown]
  - Angioedema [Unknown]
  - Blood pressure increased [Unknown]
  - Diarrhoea [Unknown]
  - Chest pain [Not Recovered/Not Resolved]
  - Haemorrhoids [Unknown]
  - Ischaemia [Not Recovered/Not Resolved]
  - Nephritis [Unknown]

NARRATIVE: CASE EVENT DATE: 201912
